FAERS Safety Report 6653600-2 (Version None)
Quarter: 2010Q1

REPORT INFORMATION
  Report Type: 
  Country: None (occurrence: None)
  Receive Date: 20100326
  Receipt Date: 20100315
  Transmission Date: 20100710
  Serious: Yes (Other)
  Sender: FDA-Public Use
  Company Number: BE-PFIZER INC-2010034030

PATIENT
  Age: 68 Year
  Sex: Male

DRUGS (3)
  1. SUNITINIB MALATE [Suspect]
     Indication: RENAL CELL CARCINOMA
     Dosage: 50 MG, 1X/DAY, WEEKS ON AND 2 WEEKS OFF
     Dates: start: 20070901, end: 20090601
  2. THIAMAZOLE [Concomitant]
     Dosage: 30 MG, 1X/DAY
     Dates: start: 20070901, end: 20080701
  3. LEVOTHYROXINE [Concomitant]
     Dosage: UNK
     Dates: start: 20080901

REACTIONS (2)
  - CARDIAC FAILURE [None]
  - THYROIDITIS [None]
